FAERS Safety Report 8935987 (Version 1)
Quarter: 2012Q4

REPORT INFORMATION
  Report Type: 
  Country: US (occurrence: US)
  Receive Date: 20121130
  Receipt Date: 20121130
  Transmission Date: 20130627
  Serious: No
  Sender: FDA-Public Use
  Company Number: US-009507513-1211USA012819

PATIENT
  Age: 4 Year
  Sex: Female
  Weight: 15.87 kg

DRUGS (2)
  1. CLARITIN ORAL SOLUTION [Suspect]
     Indication: SINUS CONGESTION
     Dosage: 5 mg, Once
     Route: 048
     Dates: start: 20121013
  2. CLARITIN ORAL SOLUTION [Suspect]
     Dosage: 5 mg, Once
     Route: 048
     Dates: start: 20121013

REACTIONS (2)
  - Overdose [Unknown]
  - Off label use [Unknown]
